FAERS Safety Report 12233640 (Version 3)
Quarter: 2016Q2

REPORT INFORMATION
  Report Type: Spontaneous
  Country: GB (occurrence: GB)
  Receive Date: 20160404
  Receipt Date: 20160601
  Transmission Date: 20160815
  Serious: Yes (Hospitalization)
  Sender: FDA-Public Use
  Company Number: GB-AUROBINDO-AUR-APL-2016-03991

PATIENT
  Age: 19 Year
  Sex: Male

DRUGS (7)
  1. TESTOSTERONE. [Suspect]
     Active Substance: TESTOSTERONE
     Route: 030
  2. PARACETAMOL [Suspect]
     Active Substance: ACETAMINOPHEN
     Indication: PRODUCT USED FOR UNKNOWN INDICATION
     Dosage: 1 G, UNK
     Route: 065
     Dates: start: 20160218
  3. SERTRALINE [Concomitant]
     Active Substance: SERTRALINE HYDROCHLORIDE
     Indication: DEPRESSION
     Route: 065
     Dates: start: 201512
  4. FLUOXETINE [Suspect]
     Active Substance: FLUOXETINE HYDROCHLORIDE
     Indication: DEPRESSION
     Dosage: 20 MG, ONCE A DAY PRESCRIBED 15 CAPSULES OVERDOSED WITH 12 ON THE 18/02
     Route: 048
     Dates: start: 20160218, end: 20160223
  5. NANDROLONE [Suspect]
     Active Substance: NANDROLONE
     Indication: PRODUCT USED FOR UNKNOWN INDICATION
     Route: 030
  6. TESTOSTERONE. [Suspect]
     Active Substance: TESTOSTERONE
     Indication: PRODUCT USED FOR UNKNOWN INDICATION
     Route: 030
  7. NANDROLONE [Suspect]
     Active Substance: NANDROLONE
     Route: 030

REACTIONS (10)
  - Skin discolouration [Unknown]
  - Chromaturia [Unknown]
  - Eye colour change [Unknown]
  - Liver function test abnormal [Recovering/Resolving]
  - Pruritus [Unknown]
  - Alanine aminotransferase increased [None]
  - Overdose [Not Recovered/Not Resolved]
  - Cholestasis [Unknown]
  - Blood bilirubin increased [None]
  - Jaundice [Recovering/Resolving]

NARRATIVE: CASE EVENT DATE: 20160218
